FAERS Safety Report 12877208 (Version 1)
Quarter: 2016Q4

REPORT INFORMATION
  Report Type: Spontaneous
  Country: US (occurrence: US)
  Receive Date: 20161023
  Receipt Date: 20161023
  Transmission Date: 20170207
  Serious: No
  Sender: FDA-Public Use
  Company Number: None

PATIENT
  Age: 53 Year
  Sex: Female
  Weight: 81 kg

DRUGS (3)
  1. LEVOXYTHYROID [Concomitant]
  2. IBUPROPHEN [Concomitant]
     Active Substance: IBUPROFEN
  3. VENLAFAXINE [Suspect]
     Active Substance: VENLAFAXINE HYDROCHLORIDE
     Indication: MYALGIA
     Dosage: ?          QUANTITY:1 CAPSULE(S);?
     Route: 048
     Dates: start: 20160301, end: 20161021

REACTIONS (1)
  - Plantar fasciitis [None]

NARRATIVE: CASE EVENT DATE: 20160601
